FAERS Safety Report 8864868 (Version 1)
Quarter: 2012Q4

REPORT INFORMATION
  Report Type: 
  Country: US (occurrence: US)
  Receive Date: 20121024
  Receipt Date: 20121024
  Transmission Date: 20130627
  Serious: No
  Sender: FDA-Public Use
  Company Number: US-AMGEN-USASP2011069722

PATIENT
  Sex: Female
  Weight: 126.98 kg

DRUGS (9)
  1. ENBREL [Suspect]
     Indication: PRODUCT USED FOR UNKNOWN INDICATION
     Dosage: 50 mg, qwk
     Route: 058
  2. METHOTREXATE [Concomitant]
     Dosage: 2.5 mg, UNK
     Route: 048
  3. SYNTHROID [Concomitant]
     Dosage: 25 mug, UNK
     Route: 048
  4. NABUMETONE [Concomitant]
     Dosage: 500 mg, UNK
     Route: 048
  5. LISINOPRIL HCT                     /01613901/ [Concomitant]
     Route: 048
  6. VICTOZA [Concomitant]
  7. MULTIVITAMIN                       /00097801/ [Concomitant]
     Route: 048
  8. LUCENTIS [Concomitant]
  9. FOLIC ACID [Concomitant]
     Route: 048

REACTIONS (1)
  - Injection site pain [Unknown]
